FAERS Safety Report 25716497 (Version 1)
Quarter: 2025Q3

REPORT INFORMATION
  Report Type: Spontaneous
  Country: TW (occurrence: TW)
  Receive Date: 20250822
  Receipt Date: 20250822
  Transmission Date: 20251021
  Serious: Yes (Hospitalization)
  Sender: ASTELLAS
  Company Number: TW-ASTELLAS-2025-AER-045230

PATIENT
  Age: 63 Year
  Sex: Male
  Weight: 67.3 kg

DRUGS (11)
  1. TACROLIMUS [Interacting]
     Active Substance: TACROLIMUS
     Indication: Renal transplant
     Dosage: THROUGH LEVEL 5-7 NG/ML
     Route: 065
     Dates: start: 2015, end: 202407
  2. TACROLIMUS [Interacting]
     Active Substance: TACROLIMUS
     Dosage: RESUMED
     Route: 065
     Dates: start: 202407
  3. PAXLOVID [Interacting]
     Active Substance: NIRMATRELVIR\RITONAVIR
     Indication: COVID-19
     Dosage: 300 MG NIRMATRELVIR WITH 100 MG RITONAVIR, TAKEN ORALLY TWICE DAILY FOR?5 DAYS)
     Route: 048
     Dates: start: 20240705, end: 20240709
  4. PHENYTOIN [Interacting]
     Active Substance: PHENYTOIN
     Indication: Enzyme induction
     Route: 065
     Dates: start: 20240712, end: 20240712
  5. PHENYTOIN [Interacting]
     Active Substance: PHENYTOIN
     Route: 065
     Dates: start: 20240713
  6. PHENYTOIN [Interacting]
     Active Substance: PHENYTOIN
     Dosage: CYP450 3A4 INDUCER
     Route: 065
     Dates: start: 20240714
  7. PHENYTOIN [Interacting]
     Active Substance: PHENYTOIN
     Dosage: CYP450 3A4 INDUCER
     Route: 065
     Dates: start: 20240715
  8. PHENYTOIN [Interacting]
     Active Substance: PHENYTOIN
     Dosage: CYP450 3A4 INDUCER
     Route: 065
     Dates: start: 20240716
  9. PHENYTOIN [Interacting]
     Active Substance: PHENYTOIN
     Dosage: CYP450 3A4 INDUCER (TOTAL PHENYTOIN DOSE: 1400 MG)
     Route: 065
     Dates: start: 20240717, end: 20240717
  10. MYCOPHENOLATE MOFETIL [Concomitant]
     Active Substance: MYCOPHENOLATE MOFETIL
     Indication: Renal transplant
     Route: 065
     Dates: start: 2015
  11. PREDNISOLONE [Concomitant]
     Active Substance: PREDNISOLONE
     Indication: Renal transplant
     Route: 065
     Dates: start: 2015

REACTIONS (4)
  - Toxicity to various agents [Recovered/Resolved]
  - COVID-19 [Unknown]
  - Drug interaction [Unknown]
  - Drug interaction [Unknown]

NARRATIVE: CASE EVENT DATE: 20240701
